FAERS Safety Report 6864503-2 (Version None)
Quarter: 2010Q3

REPORT INFORMATION
  Report Type: 
  Country: None (occurrence: None)
  Receive Date: 20100721
  Receipt Date: 20080320
  Transmission Date: 20110219
  Serious: No
  Sender: FDA-Public Use
  Company Number: US-PFIZER INC-2008027786

PATIENT
  Sex: Female
  Weight: 61.4 kg

DRUGS (5)
  1. CHANTIX [Suspect]
     Indication: SMOKING CESSATION THERAPY
     Dates: start: 20080318
  2. XANAX [Concomitant]
  3. SOMA [Concomitant]
  4. LORTAB [Concomitant]
  5. VITAMINS [Concomitant]

REACTIONS (8)
  - ASTHENIA [None]
  - FATIGUE [None]
  - FEELING ABNORMAL [None]
  - FOOD POISONING [None]
  - IRRITABILITY [None]
  - MALAISE [None]
  - NAUSEA [None]
  - SKIN DISCOLOURATION [None]
